FAERS Safety Report 20209397 (Version 1)
Quarter: 2021Q4

REPORT INFORMATION
  Report Type: Spontaneous
  Country: IT (occurrence: IT)
  Receive Date: 20211220
  Receipt Date: 20211220
  Transmission Date: 20220303
  Serious: Yes (Other)
  Sender: FDA-Public Use
  Company Number: IT-SHIRE-IT201732430

PATIENT
  Age: 67 Year
  Sex: Female
  Weight: 73 kg

DRUGS (7)
  1. IRINOTECAN [Suspect]
     Active Substance: IRINOTECAN
     Indication: Adenocarcinoma of colon
     Dosage: 200 MILLIGRAM, CYCLICAL
     Route: 042
     Dates: start: 20170727, end: 20170901
  2. LEVOLEUCOVORIN [Suspect]
     Active Substance: LEVOLEUCOVORIN
     Indication: Product used for unknown indication
     Dosage: UNK
     Route: 065
  3. ERBITUX [Suspect]
     Active Substance: CETUXIMAB
     Indication: Adenocarcinoma of colon
     Dosage: 500 MILLIGRAM, CYCLICAL
     Route: 042
     Dates: start: 20170727, end: 20170901
  4. FLUOROURACIL [Suspect]
     Active Substance: FLUOROURACIL
     Indication: Adenocarcinoma of colon
     Dosage: 540 MILLIGRAM, CYCLICAL
     Route: 040
     Dates: start: 20170727, end: 20170901
  5. FLUOROURACIL [Suspect]
     Active Substance: FLUOROURACIL
     Dosage: 3240 MILLIGRAM, CYCLICAL
     Route: 042
     Dates: start: 20170727, end: 20170901
  6. ONIVYDE [Suspect]
     Active Substance: IRINOTECAN HYDROCHLORIDE
     Indication: Adenocarcinoma of colon
     Dosage: 200 MILLIGRAM
     Route: 042
     Dates: start: 20170727, end: 20170901
  7. LEVOLEUCOVORIN [Concomitant]
     Active Substance: LEVOLEUCOVORIN
     Indication: Adenocarcinoma of colon
     Dosage: 270 MILLIGRAM, CYCLICAL
     Route: 065

REACTIONS (4)
  - Diarrhoea [Recovering/Resolving]
  - Stomatitis [Recovering/Resolving]
  - Asthenia [Recovering/Resolving]
  - Off label use [Recovered/Resolved]

NARRATIVE: CASE EVENT DATE: 20170901
